FAERS Safety Report 9104779 (Version 1)
Quarter: 2013Q1

REPORT INFORMATION
  Report Type: Report from Study
  Country: US (occurrence: US)
  Receive Date: 20130220
  Receipt Date: 20130220
  Transmission Date: 20140127
  Serious: Yes (Hospitalization)
  Sender: FDA-Public Use
  Company Number: US-JNJFOC-20130207781

PATIENT
  Age: 16 Year
  Sex: Female
  Weight: 61.2 kg

DRUGS (27)
  1. REMICADE [Suspect]
     Indication: CROHN^S DISEASE
     Route: 042
     Dates: start: 20110413
  2. TACROLIMUS [Suspect]
     Indication: CROHN^S DISEASE
     Route: 065
  3. HUMIRA [Concomitant]
     Dates: start: 20120326
  4. ORENCIA [Concomitant]
  5. ANTIBIOTICS [Concomitant]
     Indication: INFLAMMATORY BOWEL DISEASE
  6. PREDNISONE [Concomitant]
  7. HYDROCORTISONE [Concomitant]
  8. 5-ASA [Concomitant]
     Route: 048
  9. ONDANSETRON [Concomitant]
  10. TRAMADOL [Concomitant]
  11. CETIRIZINE HCL [Concomitant]
  12. METOPROLOL [Concomitant]
  13. MIDODRINE [Concomitant]
  14. MAGNESIUM OXIDE [Concomitant]
  15. ESOMEPRAZOLE [Concomitant]
  16. ACETAMINOPHEN [Concomitant]
  17. ALTEPLASE [Concomitant]
  18. CALCIUM CARBONATE [Concomitant]
  19. DIPHENHYDRAMINE [Concomitant]
  20. TOTAL PARENTERAL NUTRITION [Concomitant]
  21. FERROUS SULFATE [Concomitant]
  22. GABAPENTIN [Concomitant]
  23. HYDRALAZINE [Concomitant]
  24. HYDROMORPHONE [Concomitant]
  25. LORAZEPAM [Concomitant]
  26. MORPHINE [Concomitant]
  27. SCOPOLAMINE [Concomitant]

REACTIONS (1)
  - Hypomagnesaemia [Recovered/Resolved]
